FAERS Safety Report 6480416-2 (Version None)
Quarter: 2009Q4

REPORT INFORMATION
  Report Type: 
  Country: None (occurrence: None)
  Receive Date: 20091208
  Receipt Date: 20091201
  Transmission Date: 20100525
  Serious: Yes (Other)
  Sender: FDA-Public Use
  Company Number: CHNY2008GB00832

PATIENT
  Age: 49 Year
  Sex: Male

DRUGS (2)
  1. NICOTINE GUM (NCH) [Suspect]
     Dosage: 15 DF, QD
     Dates: start: 20010101
  2. FLUOXETINE [Concomitant]
     Indication: DEPRESSION

REACTIONS (6)
  - DISTURBANCE IN ATTENTION [None]
  - DIZZINESS [None]
  - DRUG DEPENDENCE [None]
  - INCORRECT DRUG ADMINISTRATION DURATION [None]
  - MALAISE [None]
  - WITHDRAWAL SYNDROME [None]
